FAERS Safety Report 23857867 (Version 1)
Quarter: 2024Q2

REPORT INFORMATION
  Report Type: Spontaneous
  Country: NL (occurrence: NL)
  Receive Date: 20240515
  Receipt Date: 20240515
  Transmission Date: 20240716
  Serious: Yes (Hospitalization)
  Sender: FDA-Public Use
  Company Number: NL-MYLANLABS-2024M1043175

PATIENT
  Age: 28 Year
  Sex: Female

DRUGS (14)
  1. TRANEXAMIC ACID [Suspect]
     Active Substance: TRANEXAMIC ACID
     Indication: Vaginal haemorrhage
     Dosage: 1 GRAM, Q8H (CONTINUED EVERY EIGHT HOURS)
     Route: 065
  2. CLEMASTINE [Suspect]
     Active Substance: CLEMASTINE
     Indication: Vaginal haemorrhage
     Dosage: UNK
     Route: 065
  3. OXYTOCIN [Suspect]
     Active Substance: OXYTOCIN
     Indication: Retained placenta operation
     Dosage: UNK
     Route: 065
  4. VON WILLEBRAND FACTOR HUMAN [Suspect]
     Active Substance: VON WILLEBRAND FACTOR HUMAN
     Indication: Vaginal haemorrhage
     Dosage: 150 INTERNATIONAL UNIT/KILOGRAM
     Route: 065
  5. VON WILLEBRAND FACTOR HUMAN [Suspect]
     Active Substance: VON WILLEBRAND FACTOR HUMAN
     Dosage: 25 INTERNATIONAL UNIT/KILOGRAM
     Route: 065
  6. VON WILLEBRAND FACTOR HUMAN [Suspect]
     Active Substance: VON WILLEBRAND FACTOR HUMAN
     Dosage: 100 INTERNATIONAL UNIT/KILOGRAM
     Route: 065
  7. VON WILLEBRAND FACTOR HUMAN [Suspect]
     Active Substance: VON WILLEBRAND FACTOR HUMAN
     Dosage: 200 INTERNATIONAL UNIT/KILOGRAM
     Route: 065
  8. EPTACOG ALFA [Suspect]
     Active Substance: COAGULATION FACTOR VIIA RECOMBINANT HUMAN
     Indication: Vaginal haemorrhage
     Dosage: 90 MICROGRAM/KILOGRAM, Q2H
     Route: 065
  9. EPTACOG ALFA [Suspect]
     Active Substance: COAGULATION FACTOR VIIA RECOMBINANT HUMAN
     Dosage: 90 MICROGRAM/KILOGRAM, Q3H (REINITIATED)
     Route: 065
  10. EPTACOG ALFA [Suspect]
     Active Substance: COAGULATION FACTOR VIIA RECOMBINANT HUMAN
     Dosage: 200 MICROGRAM/KILOGRAM, DURING SURGERY
     Route: 065
  11. EPTACOG ALFA [Suspect]
     Active Substance: COAGULATION FACTOR VIIA RECOMBINANT HUMAN
     Dosage: 90 MICROGRAM/KILOGRAM, Q2H
     Route: 065
  12. EMICIZUMAB [Concomitant]
     Active Substance: EMICIZUMAB
     Indication: Vaginal haemorrhage
     Dosage: 6 MILLIGRAM/KILOGRAM, DAY 1
     Route: 065
  13. EMICIZUMAB [Concomitant]
     Active Substance: EMICIZUMAB
     Indication: Prophylaxis
     Dosage: 3 MILLIGRAM/KILOGRAM, DAY 2
     Route: 065
  14. EMICIZUMAB [Concomitant]
     Active Substance: EMICIZUMAB
     Dosage: 3 MILLIGRAM/KILOGRAM, Q2W (EVERY OTHER WEEK)
     Route: 065

REACTIONS (3)
  - Drug ineffective [Unknown]
  - Maternal exposure during delivery [Recovered/Resolved]
  - Normal newborn [Recovered/Resolved]
